FAERS Safety Report 9960042 (Version 1)
Quarter: 2014Q1

REPORT INFORMATION
  Report Type: Report from Study
  Country: US (occurrence: US)
  Receive Date: 20140305
  Receipt Date: 20140305
  Transmission Date: 20141002
  Serious: No
  Sender: FDA-Public Use
  Company Number: US-ABBVIE-13P-163-1103197-00

PATIENT
  Age: 20 Year
  Sex: Male

DRUGS (4)
  1. HUMIRA [Suspect]
     Indication: CROHN^S DISEASE
     Dates: start: 20130422, end: 20130522
  2. VARIETY OF CREAMS [Concomitant]
     Indication: PSORIASIS
  3. VARIETY OF SHAMPOOS [Concomitant]
     Indication: PSORIASIS
  4. VARIETY OF LOTIONS [Concomitant]
     Indication: PSORIASIS

REACTIONS (3)
  - Gait disturbance [Recovering/Resolving]
  - Psoriasis [Recovering/Resolving]
  - Alopecia [Recovering/Resolving]
